FAERS Safety Report 4392415-5 (Version None)
Quarter: 2004Q3

REPORT INFORMATION
  Report Type: 
  Country: None (occurrence: None)
  Receive Date: 20040702
  Receipt Date: 20040219
  Transmission Date: 20050211
  Serious: Yes (Other)
  Sender: FDA-Public Use
  Company Number: 2004UW03020

PATIENT
  Age: 72 Year
  Sex: Female
  Weight: 74.8435 kg

DRUGS (10)
  1. CRESTOR [Suspect]
     Indication: BLOOD CHOLESTEROL INCREASED
     Dosage: 10 MG QOD PO
     Route: 048
     Dates: start: 20031219, end: 20040209
  2. LEVOXYL [Concomitant]
  3. LISINOPRIL [Concomitant]
  4. COREG [Concomitant]
  5. DETROL [Concomitant]
  6. FOSAMAX [Concomitant]
  7. VITAMIN [Concomitant]
  8. CALCIUM [Concomitant]
  9. GLUCOSAMINE [Concomitant]
  10. CHONDROITIN [Concomitant]

REACTIONS (6)
  - BACK PAIN [None]
  - BLOOD TRIGLYCERIDES INCREASED [None]
  - CLAVICLE FRACTURE [None]
  - FATIGUE [None]
  - MYALGIA [None]
  - ROAD TRAFFIC ACCIDENT [None]
